FAERS Safety Report 12439356 (Version 4)
Quarter: 2016Q4

REPORT INFORMATION
  Report Type: Spontaneous
  Country: US (occurrence: US)
  Receive Date: 20160606
  Receipt Date: 20161123
  Transmission Date: 20170207
  Serious: No
  Sender: FDA-Public Use
  Company Number: US-BAYER-2016-109778

PATIENT
  Age: 38 Year
  Sex: Female

DRUGS (2)
  1. FINACEA [Suspect]
     Active Substance: AZELAIC ACID
     Indication: ROSACEA
  2. FINACEA [Suspect]
     Active Substance: AZELAIC ACID
     Indication: RASH PUSTULAR
     Dosage: UNK UNK, BID (MORNING AND NIGHT)
     Route: 061
     Dates: end: 2016

REACTIONS (2)
  - Rosacea [Recovering/Resolving]
  - Drug ineffective [None]
